FAERS Safety Report 24535919 (Version 1)
Quarter: 2024Q4

REPORT INFORMATION
  Report Type: Spontaneous
  Country: CZ (occurrence: CZ)
  Receive Date: 20241022
  Receipt Date: 20241022
  Transmission Date: 20250115
  Serious: Yes (Hospitalization, Other)
  Sender: SANDOZ
  Company Number: CZ-BAXTER-2022BAX018058

PATIENT
  Age: 70 Year
  Sex: Male
  Weight: 68 kg

DRUGS (50)
  1. CYCLOPHOSPHAMIDE [Suspect]
     Active Substance: CYCLOPHOSPHAMIDE
     Indication: Diffuse large B-cell lymphoma stage IV
     Dosage: 750 MG/M2, 1Q3W
     Route: 042
     Dates: start: 20220516, end: 20220722
  2. CYCLOPHOSPHAMIDE [Suspect]
     Active Substance: CYCLOPHOSPHAMIDE
     Indication: Diffuse large B-cell lymphoma stage III
     Dosage: 750 MG/M2, Q3W (750 MG/M2 1 EVERY 3 WEEK )
     Route: 042
     Dates: start: 20220516, end: 20220516
  3. CYCLOPHOSPHAMIDE [Suspect]
     Active Substance: CYCLOPHOSPHAMIDE
     Dosage: 750 MG/M2, Q3W (750 MG/M2 1 EVERY 3 WEEK)
     Route: 042
     Dates: start: 20220610, end: 20220610
  4. CYCLOPHOSPHAMIDE [Suspect]
     Active Substance: CYCLOPHOSPHAMIDE
     Dosage: 750 MG/M2
     Route: 065
     Dates: start: 20220902
  5. DOXORUBICIN [Suspect]
     Active Substance: DOXORUBICIN
     Indication: Diffuse large B-cell lymphoma stage IV
     Dosage: 50 MG/M2, 1Q3W
     Route: 042
     Dates: start: 20220516, end: 20220722
  6. DOXORUBICIN [Suspect]
     Active Substance: DOXORUBICIN
     Indication: Diffuse large B-cell lymphoma stage III
     Dosage: 50 MG/M2, Q3W
     Route: 042
     Dates: start: 20220516, end: 20220516
  7. DOXORUBICIN [Suspect]
     Active Substance: DOXORUBICIN
     Dosage: 50 MG/M2, Q3W
     Route: 042
     Dates: start: 20220610, end: 20220610
  8. DOXORUBICIN [Suspect]
     Active Substance: DOXORUBICIN
     Dosage: 50 MG/M2
     Route: 065
     Dates: start: 20220902
  9. METHYLPREDNISOLONE [Suspect]
     Active Substance: METHYLPREDNISOLONE
     Indication: Diffuse large B-cell lymphoma stage IV
     Dosage: 80 MG
     Route: 042
     Dates: start: 20220516, end: 20220516
  10. PREDNISONE [Suspect]
     Active Substance: PREDNISONE
     Dosage: 100 MILLIGRAM DAILY;
     Route: 048
     Dates: start: 20220517, end: 20220520
  11. PREDNISONE [Suspect]
     Active Substance: PREDNISONE
     Indication: Diffuse large B-cell lymphoma
     Dosage: 100 MG, QD
     Route: 048
     Dates: start: 20220611, end: 20220614
  12. PREDNISONE [Suspect]
     Active Substance: PREDNISONE
     Indication: Diffuse large B-cell lymphoma stage IV
     Dosage: 100 MG, QD
     Route: 048
     Dates: start: 20220723, end: 20220725
  13. PREDNISONE [Suspect]
     Active Substance: PREDNISONE
     Indication: Prophylaxis
     Dosage: 100 MG, QD
     Route: 048
     Dates: start: 20220517, end: 20220520
  14. PREDNISONE [Suspect]
     Active Substance: PREDNISONE
     Dosage: 100 MG
     Route: 048
     Dates: start: 20220804, end: 20220807
  15. PREDNISONE [Suspect]
     Active Substance: PREDNISONE
     Dosage: 100 MG
     Route: 048
     Dates: start: 20220903
  16. PREDNISONE [Suspect]
     Active Substance: PREDNISONE
     Indication: Diffuse large B-cell lymphoma stage III
     Dosage: UNK
     Route: 065
  17. PREDNISONE [Suspect]
     Active Substance: PREDNISONE
     Dosage: UNK
     Route: 065
     Dates: start: 20220523, end: 20220526
  18. PREDNISONE [Suspect]
     Active Substance: PREDNISONE
     Dosage: UNK
     Route: 065
     Dates: start: 20220902
  19. RITUXIMAB [Suspect]
     Active Substance: RITUXIMAB
     Indication: Diffuse large B-cell lymphoma stage IV
     Dosage: 375 MG/M2, 1Q3W
     Route: 042
     Dates: start: 20220516, end: 20220722
  20. RITUXIMAB [Suspect]
     Active Substance: RITUXIMAB
     Indication: Diffuse large B-cell lymphoma stage III
     Dosage: 375 MG/M2, Q3W (375 MG/M2 1 EVERY 3 WEEK)
     Route: 042
     Dates: start: 20220516, end: 20220516
  21. RITUXIMAB [Suspect]
     Active Substance: RITUXIMAB
     Dosage: 375 MG/M2, Q3W (375 MG/M2 1 EVERY 3 WEEK)
     Route: 042
     Dates: start: 20220610, end: 20220610
  22. RITUXIMAB [Suspect]
     Active Substance: RITUXIMAB
     Dosage: 375 MG/M2
     Route: 065
     Dates: start: 20220902
  23. SOLU-MEDROL [Suspect]
     Active Substance: METHYLPREDNISOLONE SODIUM SUCCINATE
     Indication: Diffuse large B-cell lymphoma stage III
     Dosage: 80 MG, QD
     Route: 042
     Dates: start: 20220516, end: 20220516
  24. SOLU-MEDROL [Suspect]
     Active Substance: METHYLPREDNISOLONE SODIUM SUCCINATE
     Indication: Diffuse large B-cell lymphoma stage IV
     Dosage: 80 MG, QD
     Route: 042
     Dates: start: 20220610, end: 20220610
  25. SOLU-MEDROL [Suspect]
     Active Substance: METHYLPREDNISOLONE SODIUM SUCCINATE
     Dosage: 80 MG, QD
     Route: 042
     Dates: start: 20220722, end: 20220722
  26. SOLU-MEDROL [Suspect]
     Active Substance: METHYLPREDNISOLONE SODIUM SUCCINATE
     Dosage: 80 MG
     Route: 042
     Dates: start: 20220902
  27. VINCRISTINE [Suspect]
     Active Substance: VINCRISTINE
     Indication: Diffuse large B-cell lymphoma stage III
     Dosage: DOSAGE TEXT: 1.4 MILLIGRAM/SQ. METER, 1 EVERY 3 WEEKS/DATE OF LAST DOSE PRIOR TO EVENT: 16MAY2022
     Route: 065
     Dates: start: 20220516, end: 20220516
  28. VINCRISTINE [Suspect]
     Active Substance: VINCRISTINE
     Indication: Diffuse large B-cell lymphoma stage IV
     Dosage: DOSAGE TEXT: 1.4 MILLIGRAM/SQ. METER, 1 EVERY 3 WEEKS/DATE OF LAST DOSE PRIOR TO EVENT: 16MAY2022
     Route: 042
     Dates: start: 20220610, end: 20220610
  29. VINCRISTINE [Suspect]
     Active Substance: VINCRISTINE
     Dosage: 1.4 MG/M2
     Route: 065
     Dates: start: 20220902
  30. ACLIDINIUM BROMIDE\FORMOTEROL FUMARATE [Concomitant]
     Active Substance: ACLIDINIUM BROMIDE\FORMOTEROL FUMARATE
     Indication: Product used for unknown indication
     Dosage: UNK
     Route: 065
     Dates: start: 20220424
  31. CONTROLOC [Concomitant]
     Active Substance: PANTOPRAZOLE SODIUM
     Indication: Product used for unknown indication
     Dosage: UNK
     Route: 065
     Dates: start: 20220424
  32. CONTROLOC [Concomitant]
     Active Substance: PANTOPRAZOLE SODIUM
     Dosage: UNK
     Route: 065
     Dates: start: 20220516, end: 20220610
  33. DIGOXIN [Concomitant]
     Active Substance: DIGOXIN
     Indication: Product used for unknown indication
     Dosage: UNK
     Route: 065
     Dates: start: 2017
  34. DIGOXIN [Concomitant]
     Active Substance: DIGOXIN
     Indication: Product used for unknown indication
  35. DIGOXIN [Concomitant]
     Active Substance: DIGOXIN
     Indication: Product used for unknown indication
  36. BISULEPIN [Concomitant]
     Active Substance: BISULEPIN
     Indication: Product used for unknown indication
     Dosage: 2 MG
     Route: 048
     Dates: start: 20220523, end: 20220804
  37. BISULEPIN [Concomitant]
     Active Substance: BISULEPIN
     Dosage: UNK
     Route: 065
     Dates: start: 20220531, end: 20220617
  38. AMOXICILLIN TRIHYDRATE [Concomitant]
     Active Substance: AMOXICILLIN
     Indication: Product used for unknown indication
     Dosage: UNK
     Route: 065
     Dates: start: 20220501
  39. AMINOPHYLLINE [Concomitant]
     Active Substance: AMINOPHYLLINE
     Indication: Product used for unknown indication
     Dosage: UNK
     Route: 065
     Dates: start: 2015
  40. AMINOPHYLLINE [Concomitant]
     Active Substance: AMINOPHYLLINE
     Indication: Product used for unknown indication
  41. AMINOPHYLLINE [Concomitant]
     Active Substance: AMINOPHYLLINE
     Indication: Product used for unknown indication
  42. ONDANSETRON [Concomitant]
     Active Substance: ONDANSETRON
     Indication: Product used for unknown indication
     Dosage: UNK
     Route: 065
  43. ONDANSETRON [Concomitant]
     Active Substance: ONDANSETRON
     Dosage: UNK
     Route: 065
     Dates: start: 20220610, end: 20220610
  44. Paralen [Concomitant]
     Indication: Product used for unknown indication
     Dosage: 1000 MG
     Route: 048
     Dates: start: 20220523, end: 20220804
  45. Paralen [Concomitant]
     Dosage: UNK
     Route: 065
     Dates: start: 20220531, end: 20220617
  46. PREDNISONE [Concomitant]
     Active Substance: PREDNISONE
     Indication: Product used for unknown indication
     Dosage: UNK
     Route: 065
     Dates: start: 20220523, end: 20220620
  47. METFORMIN HYDROCHLORIDE [Concomitant]
     Active Substance: METFORMIN HYDROCHLORIDE
     Indication: Product used for unknown indication
     Dosage: UNK
     Route: 065
     Dates: start: 2015
  48. TONANDA [Concomitant]
     Indication: Product used for unknown indication
     Dosage: UNK
     Route: 065
     Dates: start: 2015
  49. TONANDA [Concomitant]
     Indication: Product used for unknown indication
  50. TONANDA [Concomitant]
     Indication: Product used for unknown indication

REACTIONS (7)
  - Pneumonia [Not Recovered/Not Resolved]
  - Arthritis bacterial [Recovered/Resolved]
  - Arthralgia [Recovered/Resolved]
  - Joint swelling [Recovered/Resolved]
  - Cytokine release syndrome [Recovered/Resolved]
  - Pneumonia [Recovered/Resolved]
  - Oedema [Unknown]

NARRATIVE: CASE EVENT DATE: 20220606
